FAERS Safety Report 5874907-2 (Version None)
Quarter: 2008Q3

REPORT INFORMATION
  Report Type: 
  Country: None (occurrence: None)
  Receive Date: 20080904
  Receipt Date: 20080818
  Transmission Date: 20090109
  Serious: Yes (Hospitalization)
  Sender: FDA-Public Use
  Company Number: 2008EU001723

PATIENT
  Age: 27 Year
  Sex: Male

DRUGS (2)
  1. PROGRAF [Suspect]
     Indication: RENAL TRANSPLANT
     Dosage: 1 DF, BID, ORAL
     Route: 048
     Dates: start: 20070401
  2. MYFORTIC [Suspect]
     Indication: RENAL TRANSPLANT
     Dosage: 1 DF, BID, ORAL
     Route: 048
     Dates: start: 20070401

REACTIONS (9)
  - ANTEROGRADE AMNESIA [None]
  - APPETITE DISORDER [None]
  - ASTHENIA [None]
  - BLOOD CREATININE INCREASED [None]
  - BLOOD POTASSIUM INCREASED [None]
  - DEPRESSION [None]
  - ENCEPHALITIS [None]
  - IATROGENIC INJURY [None]
  - SLEEP DISORDER [None]
